FAERS Safety Report 9342534 (Version 1)
Quarter: 2013Q2

REPORT INFORMATION
  Report Type: Spontaneous
  Country: US (occurrence: US)
  Receive Date: 20130611
  Receipt Date: 20130611
  Transmission Date: 20140414
  Serious: Yes (Other)
  Sender: FDA-Public Use
  Company Number: US-ELI_LILLY_AND_COMPANY-US201306000095

PATIENT
  Sex: Female

DRUGS (2)
  1. CYMBALTA [Suspect]
     Indication: PAIN
     Dosage: 60 MG, QD
  2. HYDROCODONE [Concomitant]
     Dosage: UNK, QID

REACTIONS (3)
  - Breast cancer [Unknown]
  - Pain [Not Recovered/Not Resolved]
  - Off label use [Unknown]
